FAERS Safety Report 21743706 (Version 1)
Quarter: 2022Q4

REPORT INFORMATION
  Report Type: Spontaneous
  Country: US (occurrence: US)
  Receive Date: 20221217
  Receipt Date: 20221217
  Transmission Date: 20230113
  Serious: Yes (Other)
  Sender: FDA-Public Use
  Company Number: US-002147023-NVSC2022US288887

PATIENT
  Sex: Male

DRUGS (1)
  1. DUREZOL [Suspect]
     Active Substance: DIFLUPREDNATE
     Indication: Eye swelling
     Dosage: 1 DRP, QD
     Route: 065

REACTIONS (4)
  - Eye haemorrhage [Unknown]
  - Ocular hyperaemia [Unknown]
  - Eye infection [Unknown]
  - Visual impairment [Unknown]
